FAERS Safety Report 23837921 (Version 1)
Quarter: 2024Q2

REPORT INFORMATION
  Report Type: Spontaneous
  Country: CA (occurrence: CA)
  Receive Date: 20240509
  Receipt Date: 20240509
  Transmission Date: 20240716
  Serious: Yes (Hospitalization)
  Sender: FDA-Public Use
  Company Number: CA-B.Braun Medical Inc.-2156742

PATIENT
  Age: 80 Year
  Sex: Male
  Weight: 76 kg

DRUGS (14)
  1. HEPARIN SODIUM [Suspect]
     Active Substance: HEPARIN SODIUM
     Indication: Thrombosis
     Route: 058
  2. HEPARIN SODIUM [Suspect]
     Active Substance: HEPARIN SODIUM
     Indication: Prophylaxis
  3. ACETAMINOPHEN [Concomitant]
     Active Substance: ACETAMINOPHEN
  4. VANCOMYCIN [Concomitant]
     Active Substance: VANCOMYCIN
  5. TAMSULOSIN [Concomitant]
     Active Substance: TAMSULOSIN
  6. PREGABALIN [Concomitant]
     Active Substance: PREGABALIN
  7. PIPERACILLIN SODIUM\TAZOBACTAM SODIUM [Concomitant]
     Active Substance: PIPERACILLIN SODIUM\TAZOBACTAM SODIUM
  8. ONDANSETRON [Concomitant]
     Active Substance: ONDANSETRON
  9. NITROFURANTOIN [Concomitant]
     Active Substance: NITROFURANTOIN
  10. MORPHINE [Concomitant]
     Active Substance: MORPHINE
  11. METRONIDAZOLE [Concomitant]
     Active Substance: METRONIDAZOLE
  12. LORAZEPAM [Concomitant]
     Active Substance: LORAZEPAM
  13. IRBESARTAN [Concomitant]
     Active Substance: IRBESARTAN
  14. DIMENHYDRINATE [Concomitant]
     Active Substance: DIMENHYDRINATE

REACTIONS (2)
  - Upper gastrointestinal haemorrhage [Recovered/Resolved]
  - Duodenal ulcer [Recovered/Resolved]
